FAERS Safety Report 5587227-0 (Version None)
Quarter: 2008Q1

REPORT INFORMATION
  Report Type: 
  Country: None (occurrence: None)
  Receive Date: 20080110
  Receipt Date: 20071114
  Transmission Date: 20080703
  Serious: No
  Sender: FDA-Public Use
  Company Number: US-BRISTOL-MYERS SQUIBB COMPANY-13951397

PATIENT
  Age: 76 Year
  Sex: Male

DRUGS (1)
  1. CARDIOLITE INJ [Suspect]
     Indication: SCAN MYOCARDIAL PERFUSION
     Dosage: EXERCISE 19-SEP-2007, REST 21-SEP-2007.
     Route: 042
     Dates: start: 20070919, end: 20070921

REACTIONS (1)
  - DYSGEUSIA [None]
